FAERS Safety Report 6709785-2 (Version None)
Quarter: 2010Q2

REPORT INFORMATION
  Report Type: 
  Country: None (occurrence: None)
  Receive Date: 20100504
  Receipt Date: 20100426
  Transmission Date: 20101027
  Serious: Yes (Other)
  Sender: FDA-Public Use
  Company Number: US-BAXTER-2010BH011229

PATIENT
  Age: 67 Year
  Sex: Male

DRUGS (10)
  1. IFOSFAMIDE [Suspect]
     Indication: LIPOSARCOMA METASTATIC
     Dosage: DOSE UNIT:GRAMS PER METERS SQUARED
     Route: 042
  2. IFOSFAMIDE [Suspect]
     Dosage: DOSE UNIT:GRAMS PER METERS SQUARED
     Route: 042
  3. FUROSEMIDE [Concomitant]
     Indication: DIURETIC THERAPY
     Route: 042
  4. MESNA [Concomitant]
     Indication: PROPHYLAXIS
     Route: 042
  5. DEXTROSE 5% AND SODIUM CHLORIDE 0.45% IN PLASTIC CONTAINER [Concomitant]
     Indication: PROPHYLAXIS AGAINST DEHYDRATION
     Route: 042
  6. GRANISETRON [Concomitant]
     Indication: PROPHYLAXIS OF NAUSEA AND VOMITING
     Route: 065
  7. DEXAMETHASONE [Concomitant]
     Indication: PROPHYLAXIS OF NAUSEA AND VOMITING
     Route: 065
  8. METOCLOPRAMIDE HYDROCHLORIDE [Concomitant]
     Indication: PROPHYLAXIS OF NAUSEA AND VOMITING
     Route: 065
  9. GRANULOCYTE COLONY STIMULATING FACTOR [Concomitant]
     Indication: DRUG USE FOR UNKNOWN INDICATION
     Route: 065
  10. WARFARIN [Concomitant]
     Indication: DRUG USE FOR UNKNOWN INDICATION
     Route: 065

REACTIONS (3)
  - BONE MARROW FAILURE [None]
  - CELLULITIS [None]
  - RENAL FAILURE CHRONIC [None]
